FAERS Safety Report 4331706-0 (Version None)
Quarter: 2004Q2

REPORT INFORMATION
  Report Type: 
  Country: None (occurrence: None)
  Receive Date: 20040405
  Receipt Date: 20030324
  Transmission Date: 20050107
  Serious: No
  Sender: FDA-Public Use
  Company Number: US-GLAXOSMITHKLINE-A0401604A

PATIENT
  Age: 42 Year
  Sex: Female

DRUGS (4)
  1. FLOVENT [Suspect]
     Indication: ASTHMA
     Dosage: 2PUFF IN THE MORNING
     Route: 055
     Dates: start: 20030215
  2. VANCERIL [Concomitant]
  3. FLONASE [Concomitant]
     Route: 045
  4. PAXIL [Concomitant]

REACTIONS (2)
  - BRONCHOSPASM [None]
  - COUGH [None]
